FAERS Safety Report 11907459 (Version 1)
Quarter: 2020Q3

REPORT INFORMATION
  Report Type: Report from Study
  Country: HU (occurrence: HU)
  Receive Date: 20160111
  Receipt Date: 20160111
  Transmission Date: 20201105
  Serious: Yes (Other)
  Sender: FDA-Public Use
  Company Number: HU-JNJFOC-20150708158

PATIENT
  Age: 50 Year
  Sex: Female
  Weight: 81 kg

DRUGS (19)
  1. FERRUM [Concomitant]
     Active Substance: FERROUS FUMARATE
     Route: 048
     Dates: start: 20131014
  2. NILOTINIB [Concomitant]
     Active Substance: NILOTINIB
     Route: 065
  3. ALGOPYRIN (AMINOPHENAZONE) [Concomitant]
     Active Substance: AMINOPHENAZONE
     Indication: CROHN^S DISEASE
     Route: 048
     Dates: start: 20130206
  4. USTEKINUMAB [Suspect]
     Active Substance: USTEKINUMAB
     Indication: CROHN^S DISEASE
     Dosage: WEEK 100
     Route: 058
     Dates: start: 20150323
  5. ACETYLCYSTEIN [Concomitant]
     Active Substance: ACETYLCYSTEINE
     Route: 048
     Dates: start: 20150325, end: 20150331
  6. PENTASA [Concomitant]
     Active Substance: MESALAMINE
     Indication: CROHN^S DISEASE
     Dosage: 2X1 000 MG
     Route: 048
     Dates: start: 20010412
  7. USTEKINUMAB [Suspect]
     Active Substance: USTEKINUMAB
     Indication: CROHN^S DISEASE
     Route: 058
     Dates: start: 20130422
  8. RABEPRAZOLE [Concomitant]
     Active Substance: RABEPRAZOLE
     Indication: GASTROOESOPHAGEAL REFLUX DISEASE
     Route: 048
     Dates: start: 20030601
  9. USTEKINUMAB [Suspect]
     Active Substance: USTEKINUMAB
     Indication: CROHN^S DISEASE
     Route: 058
     Dates: start: 20130225
  10. LITALIR [Concomitant]
     Active Substance: HYDROXYUREA
     Dosage: DOSAGE 1 X 1 INITIATED.
     Route: 065
  11. ASPIRIN. [Concomitant]
     Active Substance: ASPIRIN
     Route: 048
     Dates: start: 20150326, end: 20150524
  12. CONDROSULF [Concomitant]
     Active Substance: SODIUM CHONDROITIN SULFATE
     Indication: OSTEOARTHRITIS
     Route: 048
     Dates: start: 20140108
  13. DOMPERIDONE [Concomitant]
     Active Substance: DOMPERIDONE
     Indication: GASTROOESOPHAGEAL REFLUX DISEASE
     Route: 048
     Dates: start: 20130422
  14. CALCIUM [Concomitant]
     Active Substance: CALCIUM
     Indication: OSTEOPENIA
     Route: 048
     Dates: start: 20080219
  15. VITAMIN D3 [Concomitant]
     Active Substance: CHOLECALCIFEROL
     Indication: OSTEOPENIA
     Dosage: DOSAGE 2 X 1 WEEKLY
     Route: 048
     Dates: start: 20080219
  16. AZITHROMYCIN ANHYDROUS. [Concomitant]
     Active Substance: AZITHROMYCIN ANHYDROUS
     Route: 048
     Dates: start: 20150325, end: 20150327
  17. ALVERINE CITRATE [Concomitant]
     Active Substance: ALVERINE CITRATE
     Indication: CROHN^S DISEASE
     Route: 048
     Dates: start: 2008
  18. MILURIT [Concomitant]
     Active Substance: ALLOPURINOL
     Route: 065
  19. ASPIRIN PROTECT [Concomitant]
     Active Substance: ASPIRIN
     Dosage: DOSAGE 100 M
     Route: 065

REACTIONS (1)
  - Chronic myeloid leukaemia [Not Recovered/Not Resolved]

NARRATIVE: CASE EVENT DATE: 20150414
